FAERS Safety Report 13355005 (Version 1)
Quarter: 2017Q1

REPORT INFORMATION
  Report Type: Spontaneous
  Country: US (occurrence: US)
  Receive Date: 20170321
  Receipt Date: 20170321
  Transmission Date: 20170429
  Serious: No
  Sender: FDA-Public Use
  Company Number: US-WARNER CHILCOTT, LLC-1064457

PATIENT

DRUGS (1)
  1. DELZICOL [Suspect]
     Active Substance: MESALAMINE
     Route: 048

REACTIONS (1)
  - Colitis [Unknown]
